FAERS Safety Report 9828788 (Version 2)
Quarter: 2014Q1

REPORT INFORMATION
  Report Type: Report from Study
  Country: US (occurrence: US)
  Receive Date: 20140117
  Receipt Date: 20140206
  Transmission Date: 20141002
  Serious: Yes (Death)
  Sender: FDA-Public Use
  Company Number: US-ROCHE-1335579

PATIENT
  Age: 81 Year
  Sex: Male

DRUGS (13)
  1. LUCENTIS [Suspect]
     Indication: DIABETIC RETINAL OEDEMA
     Dosage: 0.3 MG / 0.05 ML
     Route: 050
  2. LUCENTIS [Suspect]
     Dosage: 0.3 MG / 0.05 ML
     Route: 050
     Dates: start: 20130717
  3. LUCENTIS [Suspect]
     Dosage: 0.3 MG / 0.05 ML
     Route: 050
     Dates: start: 20131018
  4. AVASTIN [Suspect]
     Indication: DIABETIC RETINAL OEDEMA
     Route: 065
  5. AVASTIN [Suspect]
     Route: 065
     Dates: start: 20130717
  6. AVASTIN [Suspect]
     Route: 065
     Dates: start: 20131018
  7. TIMOLOL [Concomitant]
     Dosage: QAM OU
     Route: 065
  8. ASA [Concomitant]
     Route: 065
  9. AMLODIPINE BESYLATE [Concomitant]
  10. CARVEDILOL [Concomitant]
     Route: 065
  11. FUROSEMIDE [Concomitant]
  12. LOSARTAN [Concomitant]
  13. BETADINE [Concomitant]

REACTIONS (1)
  - Death [Fatal]
